FAERS Safety Report 12116630 (Version 1)
Quarter: 2016Q1

REPORT INFORMATION
  Report Type: Spontaneous
  Country: JP (occurrence: JP)
  Receive Date: 20160225
  Receipt Date: 20160225
  Transmission Date: 20160526
  Serious: Yes (Other)
  Sender: FDA-Public Use
  Company Number: JP-BAYER-2016-036091

PATIENT
  Age: 67 Year
  Sex: Female

DRUGS (5)
  1. EPADEL [Suspect]
     Active Substance: ICOSAPENT
     Dosage: UNK
     Route: 048
  2. SOLANAX [Suspect]
     Active Substance: ALPRAZOLAM
     Dosage: UNK
     Route: 048
  3. NEXIUM [Concomitant]
     Active Substance: ESOMEPRAZOLE MAGNESIUM
     Dosage: UNK
     Route: 048
  4. BAYASPIRIN [Suspect]
     Active Substance: ASPIRIN
     Dosage: UNK
     Route: 048
     Dates: start: 2013
  5. PARIET [Concomitant]
     Active Substance: RABEPRAZOLE SODIUM
     Dosage: UNK
     Route: 048

REACTIONS (3)
  - Immune thrombocytopenic purpura [None]
  - Platelet count decreased [None]
  - Haemorrhagic diathesis [None]
